FAERS Safety Report 5924628-2 (Version None)
Quarter: 2008Q4

REPORT INFORMATION
  Report Type: 
  Country: None (occurrence: None)
  Receive Date: 20081016
  Receipt Date: 20081008
  Transmission Date: 20090506
  Serious: Yes (Death)
  Sender: FDA-Public Use
  Company Number: 100367

PATIENT
  Age: 61 Year
  Sex: Female

DRUGS (7)
  1. ACETAMINOPHEN [Suspect]
     Indication: PAIN
     Dosage: ORAL
     Route: 048
  2. HYDROCODONE BITARTRATE [Suspect]
     Indication: PAIN
     Dosage: ORAL
     Route: 048
  3. PROPOXYPHENE [Suspect]
  4. NORPROPOXYPHENE [Concomitant]
  5. PAROXETINE HCL [Concomitant]
  6. CAFFEINE [Concomitant]
  7. NICOTINE [Concomitant]

REACTIONS (8)
  - ABNORMAL BEHAVIOUR [None]
  - BRAIN HERNIATION [None]
  - BRAIN OEDEMA [None]
  - DRUG INTERACTION [None]
  - DRUG TOXICITY [None]
  - GLIOBLASTOMA MULTIFORME [None]
  - HAEMORRHAGE [None]
  - OVERDOSE [None]
